FAERS Safety Report 25216330 (Version 1)
Quarter: 2025Q2

REPORT INFORMATION
  Report Type: Spontaneous
  Country: US (occurrence: US)
  Receive Date: 20250418
  Receipt Date: 20250418
  Transmission Date: 20250717
  Serious: No
  Sender: ROCHE
  Company Number: US-ROCHE-10000253702

PATIENT
  Age: 13 Year
  Sex: Female

DRUGS (3)
  1. ACTEMRA [Suspect]
     Active Substance: TOCILIZUMAB
     Indication: Asthma
     Route: 058
     Dates: start: 202404
  2. ACTEMRA [Suspect]
     Active Substance: TOCILIZUMAB
     Indication: Food allergy
     Route: 058
     Dates: start: 202406
  3. ACTEMRA [Suspect]
     Active Substance: TOCILIZUMAB
     Indication: Dermatitis atopic

REACTIONS (3)
  - Product complaint [Unknown]
  - Product quality issue [Unknown]
  - Product dose omission issue [Unknown]

NARRATIVE: CASE EVENT DATE: 20250407
